FAERS Safety Report 11106179 (Version 1)
Quarter: 2015Q2

REPORT INFORMATION
  Report Type: Spontaneous
  Country: US (occurrence: None)
  Receive Date: 20150508
  Receipt Date: 20150508
  Transmission Date: 20150821
  Serious: Yes (Hospitalization, Other)
  Sender: FDA-Public Use
  Company Number: US-ZYDUS-007856

PATIENT
  Age: 44 Year
  Sex: Male

DRUGS (4)
  1. GINSENG [Suspect]
     Active Substance: ASIAN GINSENG
  2. SILDENAFIL (SILDENAFIL) [Concomitant]
     Active Substance: SILDENAFIL
  3. ALL OTHER THERAPEUTIC PRODUCTS (ALL OTHER THERAPEUTIC PRODUCTS) [Concomitant]
  4. LAMOTRIGINE (LAMOTRIGINE) [Suspect]
     Active Substance: LAMOTRIGINE
     Indication: TONIC CLONIC MOVEMENTS

REACTIONS (1)
  - Drug reaction with eosinophilia and systemic symptoms [None]
